FAERS Safety Report 8785291 (Version 1)
Quarter: 2012Q4

REPORT INFORMATION
  Report Type: Spontaneous
  Country: TR (occurrence: None)
  Receive Date: 20120831
  Receipt Date: 20120831
  Transmission Date: 20130627
  Serious: Yes (Hospitalization, Other)
  Sender: FDA-Public Use
  Company Number: INT_00115_2012

PATIENT
  Age: 5 Month
  Sex: Female

DRUGS (3)
  1. CEFAZOLIN [Suspect]
     Indication: PROPHYLAXIS
     Dosage: 250 MG 1X, DF INTRAVENOUS
     Route: 042
  2. CEFAZOLIN [Suspect]
     Indication: URINARY TRACT INFECTION
     Dosage: 250 MG 1X, DF INTRAVENOUS
     Route: 042
  3. AMOXICILLIN (AMOXICILLIN) [Suspect]
     Indication: PYELONEPHRITIS ACUTE
     Route: 048

REACTIONS (3)
  - Anaphylactic reaction [None]
  - Circulatory collapse [None]
  - Drug hypersensitivity [None]
